FAERS Safety Report 9314126 (Version 1)
Quarter: 2013Q2

REPORT INFORMATION
  Report Type: Spontaneous
  Country: US (occurrence: US)
  Receive Date: 20130529
  Receipt Date: 20130529
  Transmission Date: 20140414
  Serious: No
  Sender: FDA-Public Use
  Company Number: US-JNJFOC-20130515941

PATIENT
  Sex: Female
  Weight: 69.4 kg

DRUGS (1)
  1. INVEGA SUSTENNA [Suspect]
     Indication: SCHIZOPHRENIA
     Route: 030
     Dates: end: 2013

REACTIONS (3)
  - Weight increased [Unknown]
  - Breast discharge [Unknown]
  - Amenorrhoea [Unknown]
